FAERS Safety Report 10217160 (Version 1)
Quarter: 2014Q2

REPORT INFORMATION
  Report Type: Spontaneous
  Country: FR (occurrence: FR)
  Receive Date: 20140604
  Receipt Date: 20140604
  Transmission Date: 20141212
  Serious: Yes (Hospitalization, Other)
  Sender: FDA-Public Use
  Company Number: FR-PFIZER INC-2014146946

PATIENT
  Age: 83 Year
  Sex: Female

DRUGS (9)
  1. TAHOR [Suspect]
     Dosage: 40 MG, 1X/DAY
     Route: 048
     Dates: end: 20140409
  2. PREVISCAN [Suspect]
     Indication: ATRIAL FIBRILLATION
     Dosage: 0.5 TABLET AND 0.75 TABLET ON ALTERNATE DAYS
     Route: 048
     Dates: end: 20140409
  3. KARDEGIC [Suspect]
     Dosage: 75 MG, 1X/DAY
     Route: 048
     Dates: end: 20140409
  4. HEMIGOXINE NATIVELLE [Concomitant]
     Dosage: UNK
  5. LASILIX [Concomitant]
     Dosage: UNK
  6. DISCOTRINE [Concomitant]
     Dosage: UNK
  7. DOLIPRANE [Concomitant]
     Dosage: UNK
  8. METFORMIN HYDROCHLORIDE [Concomitant]
     Dosage: UNK
  9. PARIET [Concomitant]
     Dosage: UNK

REACTIONS (6)
  - Muscle haemorrhage [Recovered/Resolved with Sequelae]
  - Anaemia [Recovering/Resolving]
  - Diarrhoea [Recovered/Resolved]
  - Haematoma infection [Recovering/Resolving]
  - Intervertebral discitis [Unknown]
  - Osteitis [Unknown]
